FAERS Safety Report 6790411-1 (Version None)
Quarter: 2010Q2

REPORT INFORMATION
  Report Type: 
  Country: None (occurrence: None)
  Receive Date: 20100624
  Receipt Date: 20100621
  Transmission Date: 20101027
  Serious: Yes (Death, Other)
  Sender: FDA-Public Use
  Company Number: GB-SANOFI-AVENTIS-200920765GDDC

PATIENT
  Age: 74 Year
  Sex: Male
  Weight: 90 kg

DRUGS (4)
  1. DOCETAXEL [Suspect]
     Dosage: DOSE AS USED: 60 MG/M**2 (120MG) DOSE UNIT: 120 MG
     Route: 042
     Dates: start: 20090501, end: 20090501
  2. ZOLADEX [Concomitant]
     Route: 058
  3. FLUTICASONE W/SALMETEROL [Concomitant]
     Indication: CHRONIC OBSTRUCTIVE PULMONARY DISEASE
     Dosage: DOSE AS USED: UNK
     Route: 055
  4. TIOTROPIUM [Concomitant]
     Indication: CHRONIC OBSTRUCTIVE PULMONARY DISEASE
     Dosage: DOSE AS USED: UNK
     Route: 055

REACTIONS (10)
  - ARTHRALGIA [None]
  - ATRIAL FIBRILLATION [None]
  - CARDIOGENIC SHOCK [None]
  - DEHYDRATION [None]
  - MYALGIA [None]
  - MYOCARDIAL INFARCTION [None]
  - NEUTROPENIA [None]
  - RENAL FAILURE [None]
  - RHABDOMYOLYSIS [None]
  - SEPSIS [None]
